FAERS Safety Report 8965630 (Version 1)
Quarter: 2012Q4

REPORT INFORMATION
  Report Type: Spontaneous
  Country: GB (occurrence: None)
  Receive Date: 20121205
  Receipt Date: 20121205
  Transmission Date: 20130627
  Serious: Yes (Other)
  Sender: FDA-Public Use
  Company Number: AUR-APL-2012-05198

PATIENT
  Sex: Female

DRUGS (7)
  1. ZIDOVUDINE [Suspect]
     Indication: ANTIRETROVIRAL THERAPY
     Dates: start: 20090318
  2. ISENTRESS [Suspect]
     Indication: HIV DISEASE
     Dates: start: 20090319
  3. ISENTRESS [Suspect]
     Indication: HIV DISEASE
     Route: 064
  4. NORVIR [Suspect]
     Indication: ANTIRETROVIRAL THERAPY
     Dates: start: 20090310
  5. PREZISTA [Suspect]
     Indication: ANTIRETROVIRAL THERAPY
     Dates: start: 20090310
  6. PREZISTA [Suspect]
     Indication: ANTIRETROVIRAL THERAPY
  7. TRUVADA [Suspect]
     Indication: ANTIRETROVIRAL THERAPY

REACTIONS (2)
  - Maternal exposure during pregnancy [None]
  - Caesarean section [None]
